FAERS Safety Report 15441153 (Version 1)
Quarter: 2018Q3

REPORT INFORMATION
  Report Type: Spontaneous
  Country: US (occurrence: US)
  Receive Date: 20180928
  Receipt Date: 20180928
  Transmission Date: 20181010
  Serious: No
  Sender: FDA-Public Use
  Company Number: US-NOVOPROD-615977

PATIENT
  Sex: Female

DRUGS (1)
  1. OZEMPIC [Suspect]
     Active Substance: SEMAGLUTIDE
     Indication: PRODUCT USED FOR UNKNOWN INDICATION
     Dosage: 1 MG, QD
     Route: 058

REACTIONS (7)
  - Discomfort [Unknown]
  - Inappropriate schedule of drug administration [Recovered/Resolved]
  - Vomiting [Unknown]
  - Drug dose titration not performed [Unknown]
  - Nausea [Unknown]
  - Impaired gastric emptying [Unknown]
  - Skin discomfort [Unknown]
